FAERS Safety Report 23273304 (Version 1)
Quarter: 2023Q4

REPORT INFORMATION
  Report Type: Spontaneous
  Country: ES (occurrence: ES)
  Receive Date: 20231207
  Receipt Date: 20231207
  Transmission Date: 20240110
  Serious: Yes (Other)
  Sender: FDA-Public Use
  Company Number: ES-PFIZER INC-202300373168

PATIENT
  Age: 47 Year
  Sex: Female

DRUGS (4)
  1. PACLITAXEL [Suspect]
     Active Substance: PACLITAXEL
     Indication: Product used for unknown indication
     Dosage: 60MG/M2 DAYS 1, 8 AND 15, EVERY 28 CYCLE
     Route: 065
     Dates: start: 202208
  2. CAPECITABINE [Suspect]
     Active Substance: CAPECITABINE
     Indication: Product used for unknown indication
     Dosage: 1000 MG/M2/12 HOURS X 14 DAYS EVERY 21 DAYS CYCLE
     Route: 065
  3. ERIBULIN [Suspect]
     Active Substance: ERIBULIN
     Indication: Product used for unknown indication
     Dosage: CYCLICAL DAYS 1 AND 8 EVERY 21 DAYS
     Route: 065
  4. TRASTUZUMAB [Suspect]
     Active Substance: TRASTUZUMAB
     Indication: Product used for unknown indication
     Dosage: UNK 6TH LINE
     Route: 065

REACTIONS (3)
  - Neutropenia [Unknown]
  - Lymphadenopathy [Unknown]
  - Neoplasm progression [Unknown]
